FAERS Safety Report 4880840-5 (Version None)
Quarter: 2005Q4

REPORT INFORMATION
  Report Type: 
  Country: None (occurrence: None)
  Receive Date: 20051223
  Receipt Date: 20051108
  Transmission Date: 20060501
  Serious: No
  Sender: FDA-Public Use
  Company Number: 05P-163-0316669-00

PATIENT
  Age: 69 Year
  Sex: Female
  Weight: 64.4108 kg

DRUGS (3)
  1. HUMIRA [Suspect]
     Indication: RHEUMATOID ARTHRITIS
     Dosage: 40MG, 1 IN 2 WK, SUBCUTANEOUS
     Route: 058
     Dates: start: 20051019
  2. VICODIN [Concomitant]
  3. PREDNISONE [Concomitant]

REACTIONS (2)
  - BURNING SENSATION [None]
  - LIMB DISCOMFORT [None]
